FAERS Safety Report 7542875-3 (Version None)
Quarter: 2011Q2

REPORT INFORMATION
  Report Type: 
  Country: None (occurrence: None)
  Receive Date: 20110613
  Receipt Date: 20110603
  Transmission Date: 20111010
  Serious: Yes (Hospitalization)
  Sender: FDA-Public Use
  Company Number: US-MPIJNJ-2011-02074

PATIENT
  Sex: Female
  Weight: 66.213 kg

DRUGS (4)
  1. DECADRON [Suspect]
     Indication: MULTIPLE MYELOMA
     Dosage: 20 MG, CYCLIC
     Route: 042
     Dates: start: 20100415, end: 20110119
  2. AMICAR [Concomitant]
     Indication: EPISTAXIS
     Dosage: UNK
     Dates: start: 20100601
  3. DECADRON [Suspect]
     Dosage: 20 UNK, UNK
     Route: 048
     Dates: start: 20100415, end: 20110119
  4. VELCADE [Suspect]
     Indication: MULTIPLE MYELOMA
     Dosage: 1.3 MG/M2, CYCLIC
     Route: 042
     Dates: start: 20100415, end: 20110119

REACTIONS (4)
  - HEADACHE [None]
  - PYREXIA [None]
  - HAEMATOMA [None]
  - EPISTAXIS [None]
